FAERS Safety Report 5542870-X (Version None)
Quarter: 2007Q4

REPORT INFORMATION
  Report Type: 
  Country: None (occurrence: None)
  Receive Date: 20071123
  Receipt Date: 20070508
  Transmission Date: 20080405
  Serious: Yes (Other)
  Sender: FDA-Public Use
  Company Number: US-JNJFOC-20070301506

PATIENT
  Age: 56 Year
  Sex: Female
  Weight: 60.3284 kg

DRUGS (4)
  1. LEVAQUIN [Suspect]
     Indication: URINARY TRACT INFECTION
     Dosage: 250 MG, 1 IN 1 DAY, ORAL; 250 MG, 1 IN 1 DAY, ORAL
     Route: 048
     Dates: end: 20070101
  2. LEVAQUIN [Suspect]
     Indication: URINARY TRACT INFECTION
     Dosage: 250 MG, 1 IN 1 DAY, ORAL; 250 MG, 1 IN 1 DAY, ORAL
     Route: 048
     Dates: start: 20040101
  3. VIBRAMYCIN (DOXYCYCLINE HYDRATE) [Concomitant]
  4. CIPRO [Concomitant]

REACTIONS (1)
  - TENDON RUPTURE [None]
